FAERS Safety Report 11313487 (Version 1)
Quarter: 2015Q3

REPORT INFORMATION
  Report Type: Report from Study
  Country: US (occurrence: US)
  Receive Date: 20150727
  Receipt Date: 20150727
  Transmission Date: 20151125
  Serious: No
  Sender: FDA-Public Use
  Company Number: US-AMGEN-USASL2015072841

PATIENT
  Age: 67 Year
  Sex: Male

DRUGS (1)
  1. ENBREL [Suspect]
     Active Substance: ETANERCEPT
     Indication: RHEUMATOID ARTHRITIS
     Dosage: UNK UNK, UNK
     Route: 065

REACTIONS (10)
  - Drug dose omission [Unknown]
  - Pain [Unknown]
  - Pain in extremity [Unknown]
  - Memory impairment [Unknown]
  - Arthropathy [Unknown]
  - Arthralgia [Unknown]
  - Osteoporosis [Unknown]
  - Fatigue [Unknown]
  - Mobility decreased [Unknown]
  - Injection site pain [Unknown]

NARRATIVE: CASE EVENT DATE: 20150719
